FAERS Safety Report 20920714 (Version 1)
Quarter: 2022Q2

REPORT INFORMATION
  Report Type: Spontaneous
  Country: CN (occurrence: CN)
  Receive Date: 20220606
  Receipt Date: 20220606
  Transmission Date: 20220721
  Serious: Yes (Hospitalization)
  Sender: FDA-Public Use
  Company Number: CN-PFIZER INC-202200798323

PATIENT
  Age: 56 Year
  Sex: Male
  Weight: 58 kg

DRUGS (4)
  1. EPIRUBICIN [Suspect]
     Active Substance: EPIRUBICIN
     Indication: Hepatic cancer
     Dosage: 20 MG, 1X/DAY
     Route: 013
     Dates: start: 20220512, end: 20220512
  2. FLUOROURACIL [Suspect]
     Active Substance: FLUOROURACIL
     Indication: Hepatic cancer
     Dosage: 500 MG, 1X/DAY
     Route: 013
     Dates: start: 20220512, end: 20220512
  3. OXALIPLATIN [Suspect]
     Active Substance: OXALIPLATIN
     Indication: Hepatic cancer
     Dosage: 100 MG, 1X/DAY
     Route: 013
     Dates: start: 20220512, end: 20220512
  4. IODINE [Suspect]
     Active Substance: IODINE
     Indication: Hepatic cancer
     Dosage: 25 ML, 1X/DAY
     Route: 013
     Dates: start: 20220512, end: 20220512

REACTIONS (1)
  - Acute hepatic failure [Recovering/Resolving]

NARRATIVE: CASE EVENT DATE: 20220514
